FAERS Safety Report 8558117-6 (Version None)
Quarter: 2012Q3

REPORT INFORMATION
  Report Type: 
  Country: None (occurrence: None)
  Receive Date: 20120801
  Receipt Date: 20120724
  Transmission Date: 20120928
  Serious: Yes (Other)
  Sender: FDA-Public Use
  Company Number: US-ABBOTT-12P-163-0959961-00

PATIENT
  Sex: Female

DRUGS (5)
  1. NOVOLOG [Concomitant]
     Indication: GLUCOSE TOLERANCE IMPAIRED
  2. HUMIRA [Suspect]
     Dates: end: 20111201
  3. ASPIRIN [Concomitant]
     Indication: HELLP SYNDROME
  4. HUMIRA [Suspect]
     Indication: CROHN'S DISEASE
     Dates: start: 20080101, end: 20090801
  5. HUMIRA [Suspect]
     Dates: start: 20120601

REACTIONS (2)
  - CROHN'S DISEASE [None]
  - GLUCOSE TOLERANCE IMPAIRED [None]
